FAERS Safety Report 6635988-1 (Version None)
Quarter: 2010Q1

REPORT INFORMATION
  Report Type: 
  Country: None (occurrence: None)
  Receive Date: 20100310
  Receipt Date: 20100301
  Transmission Date: 20100710
  Serious: Yes (Death, Life-Threatening, Disabling)
  Sender: FDA-Public Use
  Company Number: 2009JP005211

PATIENT
  Age: 54 Year
  Sex: Male
  Weight: 61.4 kg

DRUGS (13)
  1. PROGRAF [Suspect]
     Indication: BONE MARROW TRANSPLANT
     Dosage: 5 MG, IV BOLUS; 0.9 MG, IV DRIP
     Route: 040
     Dates: start: 20090716, end: 20090803
  2. PROGRAF [Suspect]
     Indication: BONE MARROW TRANSPLANT
     Dosage: 5 MG, IV BOLUS; 0.9 MG, IV DRIP
     Route: 040
     Dates: start: 20090804, end: 20090804
  3. CYCLOPHOSPHAMIDE [Suspect]
  4. MEROPENEM [Suspect]
     Indication: PYREXIA
     Dosage: 1 G, BID, IV NOS
     Route: 042
     Dates: start: 20090727, end: 20090808
  5. VANCOMYCIN [Suspect]
     Dosage: 1 G, BID, IV NOS
     Route: 042
     Dates: start: 20090728, end: 20090808
  6. PRODIF (FOSFLUCONAZOLE) [Concomitant]
  7. FLUDARABINE PHOSPHATE [Concomitant]
  8. CYCLOPHOSPHAMIDE [Concomitant]
  9. CEFEFIME (CEFEPIME) [Concomitant]
  10. HANP (CARPERITIDE) [Concomitant]
  11. DOPAMINE HYDROCHLORIDE [Concomitant]
  12. ELASPOL (SIVELESTAT SODIUM) [Concomitant]
  13. METHOTREXATE [Concomitant]

REACTIONS (17)
  - BONE MARROW TRANSPLANT [None]
  - CEREBRAL HAEMORRHAGE [None]
  - DEPRESSED LEVEL OF CONSCIOUSNESS [None]
  - HEPATIC FAILURE [None]
  - IMMUNOSUPPRESSION [None]
  - INCORRECT DRUG ADMINISTRATION RATE [None]
  - INCORRECT ROUTE OF DRUG ADMINISTRATION [None]
  - LIVER ABSCESS [None]
  - MULTI-ORGAN FAILURE [None]
  - NERVOUS SYSTEM DISORDER [None]
  - OVERDOSE [None]
  - PLATELET COUNT DECREASED [None]
  - PNEUMONIA [None]
  - RENAL IMPAIRMENT [None]
  - SPUTUM PURULENT [None]
  - STAPHYLOCOCCAL SEPSIS [None]
  - VISUAL IMPAIRMENT [None]
